FAERS Safety Report 6528476-4 (Version None)
Quarter: 2009Q4

REPORT INFORMATION
  Report Type: 
  Country: None (occurrence: None)
  Receive Date: 20091222
  Receipt Date: 20090905
  Transmission Date: 20100525
  Serious: No
  Sender: FDA-Public Use
  Company Number: ALL1-2009-02628

PATIENT
  Age: 20 Year
  Sex: Male
  Weight: 72.6 kg

DRUGS (1)
  1. VYVANSE [Suspect]
     Indication: ATTENTION DEFICIT/HYPERACTIVITY DISORDER
     Dosage: 50 MG, 1X/DAY:QD, ORAL
     Route: 048
     Dates: start: 20090601

REACTIONS (4)
  - CHEST PAIN [None]
  - DECREASED APPETITE [None]
  - VISION BLURRED [None]
  - WEIGHT DECREASED [None]
